FAERS Safety Report 17199498 (Version 2)
Quarter: 2020Q1

REPORT INFORMATION
  Report Type: Report from Study
  Country: US (occurrence: US)
  Receive Date: 20191226
  Receipt Date: 20200121
  Transmission Date: 20200409
  Serious: Yes (Other)
  Sender: FDA-Public Use
  Company Number: US-AMGEN-USASL2019212558

PATIENT
  Age: 70 Year
  Sex: Female
  Weight: 80.73 kg

DRUGS (1)
  1. PROLIA [Suspect]
     Active Substance: DENOSUMAB
     Indication: OSTEOPOROSIS POSTMENOPAUSAL
     Dosage: UNK
     Route: 065
     Dates: start: 201910

REACTIONS (8)
  - Abnormal behaviour [Unknown]
  - Protein deficiency [Unknown]
  - Glossodynia [Unknown]
  - Swollen tongue [Unknown]
  - Blood iron decreased [Unknown]
  - Tongue erythema [Unknown]
  - Neuropathy peripheral [Unknown]
  - Alopecia [Unknown]

NARRATIVE: CASE EVENT DATE: 201910
